FAERS Safety Report 4640362-3 (Version None)
Quarter: 2005Q2

REPORT INFORMATION
  Report Type: 
  Country: None (occurrence: None)
  Receive Date: 20050420
  Receipt Date: 20040920
  Transmission Date: 20051028
  Serious: No
  Sender: FDA-Public Use
  Company Number: 165540

PATIENT

DRUGS (2)
  1. LITHIUM CARBONATE [Suspect]
     Indication: DRUG USE FOR UNKNOWN INDICATION
     Route: 065
  2. ZYPREXA [Suspect]
     Indication: DRUG USE FOR UNKNOWN INDICATION

REACTIONS (1)
  - SLUGGISHNESS [None]
